FAERS Safety Report 8502099-X (Version None)
Quarter: 2012Q2

REPORT INFORMATION
  Report Type: 
  Country: None (occurrence: None)
  Receive Date: 20120405
  Receipt Date: 20101018
  Transmission Date: 20120825
  Serious: Yes (Life-Threatening, Other)
  Sender: FDA-Public Use
  Company Number: PHHY2010US66098

PATIENT
  Age: 77 Year
  Sex: Female
  Weight: 60.5 kg

DRUGS (9)
  1. CALCIUM CARBONATE [Concomitant]
  2. CRANBERRY [Concomitant]
  3. ASPIRIN [Concomitant]
  4. CHLOR-ATHROMBON (CLORINDIONE) [Concomitant]
  5. NAPROXEN (ALEVE) [Concomitant]
  6. HIPREX [Concomitant]
  7. LEVOTHYROXINE SODIUM [Concomitant]
  8. PREDNISONE TAB [Concomitant]
  9. RECLAST [Suspect]
     Indication: OSTEOPOROSIS
     Dosage: 5 MG, INTRAVENOUS
     Route: 042
     Dates: start: 20100826, end: 20100826

REACTIONS (5)
  - PALPITATIONS [None]
  - CHEST DISCOMFORT [None]
  - CHEST PAIN [None]
  - ATRIAL FIBRILLATION [None]
  - BLOOD PRESSURE DECREASED [None]
